FAERS Safety Report 18536068 (Version 1)
Quarter: 2020Q4

REPORT INFORMATION
  Report Type: Spontaneous
  Country: US (occurrence: US)
  Receive Date: 20201124
  Receipt Date: 20201124
  Transmission Date: 20210114
  Serious: No
  Sender: FDA-Public Use
  Company Number: US-TEVA-2020-US-1849428

PATIENT
  Age: 58 Year
  Sex: Female
  Weight: 92.99 kg

DRUGS (4)
  1. AUSTEDO [Suspect]
     Active Substance: DEUTETRABENAZINE
     Indication: TARDIVE DYSKINESIA
     Dosage: 6 MILLIGRAM DAILY;
     Route: 065
     Dates: start: 202011
  2. AUSTEDO [Suspect]
     Active Substance: DEUTETRABENAZINE
     Dosage: 12 MILLIGRAM DAILY; 2-WEEK OF TITRATING
     Route: 065
  3. METFORMIN [Concomitant]
     Active Substance: METFORMIN HYDROCHLORIDE
     Indication: BLOOD GLUCOSE INCREASED
  4. GABAPENTIN. [Concomitant]
     Active Substance: GABAPENTIN
     Indication: MUSCLE DISORDER

REACTIONS (2)
  - Drug titration error [Unknown]
  - Platelet count increased [Unknown]

NARRATIVE: CASE EVENT DATE: 202011
